FAERS Safety Report 6241571-2 (Version None)
Quarter: 2009Q2

REPORT INFORMATION
  Report Type: 
  Country: None (occurrence: None)
  Receive Date: 20090623
  Receipt Date: 20060305
  Transmission Date: 20091009
  Serious: Yes (Hospitalization)
  Sender: FDA-Public Use
  Company Number: DE-ROCHE-380176

PATIENT
  Sex: Female

DRUGS (15)
  1. DACLIZUMAB [Suspect]
     Route: 042
     Dates: start: 20040727, end: 20040727
  2. DACLIZUMAB [Suspect]
     Route: 042
     Dates: start: 20040812
  3. MYCOPHENOLATE MOFETIL [Suspect]
     Dosage: DRUG: MYCOPHENOLATMOFETIL
     Route: 048
     Dates: start: 20040727
  4. CYCLOSPORINE [Suspect]
     Route: 065
  5. SIROLIMUS [Suspect]
     Route: 048
     Dates: start: 20040727
  6. SIROLIMUS [Suspect]
     Route: 048
     Dates: start: 20040730
  7. SIROLIMUS [Suspect]
     Route: 048
     Dates: start: 20040902, end: 20040929
  8. SIROLIMUS [Suspect]
     Route: 048
     Dates: start: 20041001
  9. TACROLIMUS [Suspect]
     Route: 048
     Dates: start: 20041007
  10. TACROLIMUS [Suspect]
     Route: 048
     Dates: start: 20051007
  11. PREDNISOLONE [Suspect]
     Route: 042
     Dates: start: 20040727, end: 20040727
  12. PREDNISONE [Suspect]
     Dosage: DRUG: PREDNISON
     Route: 048
     Dates: start: 20040728
  13. AMPHOTERICIN B [Concomitant]
     Route: 048
     Dates: start: 20040728
  14. ENOXAPARIN SODIUM [Concomitant]
     Route: 058
     Dates: start: 20040727
  15. LEVOTHYROXINE [Concomitant]
     Dosage: DRUG: LEVOTHYROXIN; FREQUENCY: -/1 DAY
     Route: 048
     Dates: start: 20040728

REACTIONS (1)
  - HERPES ZOSTER [None]
